FAERS Safety Report 6371271-X (Version None)
Quarter: 2009Q3

REPORT INFORMATION
  Report Type: 
  Country: None (occurrence: None)
  Receive Date: 20090923
  Receipt Date: 20071130
  Transmission Date: 20100115
  Serious: Yes (Hospitalization)
  Sender: FDA-Public Use
  Company Number: US-ASTRAZENECA-2007UW03850

PATIENT
  Age: 21 Year
  Sex: Male
  Weight: 107.5 kg

DRUGS (19)
  1. SEROQUEL [Suspect]
     Indication: DEPRESSION
     Dosage: 150 MG IN THE MORNING AND 150 MG IN THE EVENING
     Route: 048
     Dates: start: 19991122, end: 20000701
  2. SEROQUEL [Suspect]
     Dosage: 25-200 MG
     Route: 048
  3. SLIM FAST [Concomitant]
     Dates: start: 20020101, end: 20030101
  4. RILICORE [Concomitant]
     Dates: start: 20071001, end: 20080201
  5. INVEGA [Concomitant]
     Dates: start: 20080301
  6. RISPERDAL [Concomitant]
     Indication: DEPRESSION
     Dates: start: 19980724, end: 19981212
  7. RISPERDAL [Concomitant]
     Dates: start: 19981213, end: 19981227
  8. RISPERDAL [Concomitant]
     Dates: start: 20011127, end: 20041104
  9. RISPERDAL [Concomitant]
     Dates: start: 20021105, end: 20041205
  10. RISPERDAL [Concomitant]
     Dates: start: 20050219, end: 20051008
  11. RISPERDAL [Concomitant]
     Dates: start: 20051009, end: 20080201
  12. PAXIL [Concomitant]
  13. FLUOXETINE [Concomitant]
  14. HYDROCODONE [Concomitant]
  15. GLIMEPIRIDE [Concomitant]
  16. WELLBUTRIN [Concomitant]
  17. LUNESTA [Concomitant]
  18. METFORMIN HCL [Concomitant]
  19. INSULIN [Concomitant]

REACTIONS (4)
  - DEPRESSION [None]
  - DIABETES MELLITUS [None]
  - DIABETES MELLITUS INADEQUATE CONTROL [None]
  - DRUG INEFFECTIVE [None]
